FAERS Safety Report 4491345-8 (Version None)
Quarter: 2004Q4

REPORT INFORMATION
  Report Type: 
  Country: None (occurrence: None)
  Receive Date: 20041029
  Receipt Date: 20041020
  Transmission Date: 20050328
  Serious: No
  Sender: FDA-Public Use
  Company Number: 04H-163-0278087-00

PATIENT
  Sex: Female

DRUGS (1)
  1. HYDROMORPHONE HCL INJECTION (HYDROMORPHONE HYDROCHLORIDE) [Suspect]
     Indication: PAIN MANAGEMENT

REACTIONS (3)
  - AGITATION [None]
  - CONVULSION [None]
  - MYOCLONUS [None]
